FAERS Safety Report 8265812-5 (Version None)
Quarter: 2012Q2

REPORT INFORMATION
  Report Type: 
  Country: None (occurrence: None)
  Receive Date: 20120406
  Receipt Date: 20120329
  Transmission Date: 20120825
  Serious: Yes (Death, Life-Threatening, Hospitalization, Other)
  Sender: FDA-Public Use
  Company Number: US-ROXANE LABORATORIES, INC.-2012-RO-00920RO

PATIENT
  Age: 5 Month
  Sex: Female

DRUGS (8)
  1. GANCICLOVIR [Suspect]
     Indication: ANTIVIRAL PROPHYLAXIS
  2. CYTARABINE [Suspect]
     Indication: ACUTE MYELOID LEUKAEMIA
  3. ETOPOSIDE [Suspect]
     Indication: ACUTE MYELOID LEUKAEMIA
  4. TACROLIMUS [Suspect]
     Indication: IMMUNOSUPPRESSANT DRUG THERAPY
  5. GANCICLOVIR [Suspect]
     Indication: EPSTEIN-BARR VIRAEMIA
     Route: 042
  6. IMMUNE GLOBULIN NOS [Suspect]
     Indication: HYPOGAMMAGLOBULINAEMIA
     Route: 042
  7. DAUNORUBICIN HCL [Suspect]
     Indication: ACUTE MYELOID LEUKAEMIA
  8. PREDNISONE [Suspect]
     Indication: IMMUNOSUPPRESSANT DRUG THERAPY

REACTIONS (10)
  - VIRAL INFECTION [None]
  - EAR INFECTION [None]
  - CYTOMEGALOVIRUS ENTERITIS [None]
  - ACUTE MYELOID LEUKAEMIA [None]
  - NEUTROPENIA [None]
  - ALPHA HAEMOLYTIC STREPTOCOCCAL INFECTION [None]
  - PYREXIA [None]
  - CARDIAC FAILURE [None]
  - SINUSITIS [None]
  - URINARY TRACT INFECTION BACTERIAL [None]
